FAERS Safety Report 24291519 (Version 1)
Quarter: 2024Q3

REPORT INFORMATION
  Report Type: Spontaneous
  Country: US (occurrence: None)
  Receive Date: 20240906
  Receipt Date: 20240906
  Transmission Date: 20241016
  Serious: No
  Sender: DOMPE FARMACEUTICI
  Company Number: US-FARMAPROD-202309-2738

PATIENT
  Age: 72 Year
  Sex: Male

DRUGS (21)
  1. OXERVATE [Suspect]
     Active Substance: CENEGERMIN-BKBJ
     Indication: Neurotrophic keratopathy
     Route: 047
     Dates: start: 20230831, end: 20231004
  2. OXERVATE [Suspect]
     Active Substance: CENEGERMIN-BKBJ
  3. PREDNISOLONE [Concomitant]
     Active Substance: PREDNISOLONE
     Dosage: 15 MG/5 ML
  4. COENZYME Q-10 [Concomitant]
  5. VITAMIN D2 [Concomitant]
     Active Substance: ERGOCALCIFEROL
  6. VITAMIN C [Concomitant]
     Active Substance: ASCORBIC ACID
  7. ZINC [Concomitant]
     Active Substance: ZINC
  8. VITAMIN B-COMPLEX WITH VIT C [Concomitant]
  9. LUMIGAN [Concomitant]
     Active Substance: BIMATOPROST
  10. COMBIGAN [Concomitant]
     Active Substance: BRIMONIDINE TARTRATE\TIMOLOL MALEATE
     Dosage: 0.2%-0.5%
  11. RESTASIS [Concomitant]
     Active Substance: CYCLOSPORINE
  12. NEOMYCIN-POLYMYXIN-DEXAMETH [Concomitant]
  13. ASPIRIN [Concomitant]
     Active Substance: ASPIRIN
  14. TAMSULOSIN HYDROCHLORIDE [Concomitant]
     Active Substance: TAMSULOSIN HYDROCHLORIDE
  15. ROSUVASTATIN CALCIUM [Concomitant]
     Active Substance: ROSUVASTATIN CALCIUM
  16. ATENOLOL [Concomitant]
     Active Substance: ATENOLOL
  17. CLOPIDOGREL [Concomitant]
     Active Substance: CLOPIDOGREL BISULFATE
  18. AMIODARONE HYDROCHLORIDE [Concomitant]
     Active Substance: AMIODARONE HYDROCHLORIDE
  19. HYDROCHLOROTHIAZIDE [Concomitant]
     Active Substance: HYDROCHLOROTHIAZIDE
  20. LISINOPRIL [Concomitant]
     Active Substance: LISINOPRIL
  21. NEOMYCIN [Concomitant]
     Active Substance: NEOMYCIN
     Route: 047

REACTIONS (6)
  - Eye pain [Not Recovered/Not Resolved]
  - Product administration error [Unknown]
  - Therapy partial responder [Recovering/Resolving]
  - Headache [Unknown]
  - Nausea [Unknown]
  - Insomnia [Unknown]
